FAERS Safety Report 10258303 (Version 3)
Quarter: 2014Q3

REPORT INFORMATION
  Report Type: Spontaneous
  Country: JP (occurrence: JP)
  Receive Date: 20140625
  Receipt Date: 20140707
  Transmission Date: 20150326
  Serious: Yes (Hospitalization)
  Sender: FDA-Public Use
  Company Number: JP-SA-2014SA050093

PATIENT
  Age: 63 Year
  Sex: Male
  Weight: 64 kg

DRUGS (13)
  1. THERAPEUTIC RADIOPHARMACEUTICALS [Concomitant]
     Active Substance: RADIATION THERAPY
     Dosage: AT 60 G. EFFECT, PR
     Dates: start: 20131025, end: 20131218
  2. ALOXI [Concomitant]
     Active Substance: PALONOSETRON HYDROCHLORIDE
     Indication: PREMEDICATION
     Dosage: (EVERY ADMINISTRATION OF COMPANY SUSPECTED DRUG)
     Route: 042
  3. ADONA [Concomitant]
     Active Substance: CARBAZOCHROME SODIUM SULFONATE
     Route: 048
     Dates: start: 20140326
  4. SALMETEROL XINAFOATE [Concomitant]
     Active Substance: SALMETEROL XINAFOATE
     Indication: ASTHMA
     Route: 055
     Dates: start: 20131116
  5. MUCOSOLVAN [Concomitant]
     Active Substance: AMBROXOL\CLENBUTEROL
     Indication: PRODUCTIVE COUGH
     Route: 048
     Dates: start: 20130925
  6. PROTECADIN [Concomitant]
     Active Substance: LAFUTIDINE
     Indication: CHRONIC GASTRITIS
     Route: 048
     Dates: start: 20131106
  7. VASOLAN [Concomitant]
     Active Substance: VERAPAMIL HYDROCHLORIDE
     Indication: SUPRAVENTRICULAR TACHYCARDIA
     Route: 048
     Dates: start: 20140106
  8. GLACTIV [Concomitant]
     Active Substance: SITAGLIPTIN
     Indication: DIABETES MELLITUS
     Route: 048
     Dates: start: 20140121
  9. PROEMEND [Concomitant]
     Active Substance: FOSAPREPITANT
     Indication: PREMEDICATION
     Dosage: (EVERY ADMINISTRATION OF COMPANY SUSPECTED DRUG)
  10. PREDNISOLONE. [Concomitant]
     Active Substance: PREDNISOLONE
     Indication: RADIATION PNEUMONITIS
     Route: 048
     Dates: start: 20140330, end: 20140409
  11. CISPLATIN. [Concomitant]
     Active Substance: CISPLATIN
     Indication: NON-SMALL CELL LUNG CANCER
     Dosage: EFFECT, PR
     Dates: start: 20131024, end: 20140227
  12. TAXOTERE [Suspect]
     Active Substance: DOCETAXEL
     Indication: NON-SMALL CELL LUNG CANCER
     Dosage: 70 MG/DAY TWICE EVERY 14 DAY
     Route: 042
     Dates: start: 20131024, end: 20140227
  13. THERAPEUTIC RADIOPHARMACEUTICALS [Concomitant]
     Active Substance: RADIATION THERAPY
     Dosage: AT 60 G. EFFECT, PR
     Dates: start: 201403

REACTIONS (4)
  - Bronchial injury [Recovering/Resolving]
  - Pyrexia [Recovering/Resolving]
  - Chest pain [Recovering/Resolving]
  - Cough [Recovering/Resolving]

NARRATIVE: CASE EVENT DATE: 20140405
